FAERS Safety Report 6644564-6 (Version None)
Quarter: 2010Q1

REPORT INFORMATION
  Report Type: 
  Country: None (occurrence: None)
  Receive Date: 20100319
  Receipt Date: 20100319
  Transmission Date: 20100710
  Serious: Yes (Other)
  Sender: FDA-Public Use
  Company Number: None

PATIENT
  Age: 52 Year
  Sex: Female
  Weight: 99.7913 kg

DRUGS (1)
  1. CREST PRO HEALTH RINSE NO ALCOHOL CREST [Suspect]
     Indication: DENTAL DISORDER PROPHYLAXIS
     Dosage: NIGHTLY DENTAL
     Route: 004
     Dates: start: 20090901, end: 20100317

REACTIONS (1)
  - TOOTH DISCOLOURATION [None]
